FAERS Safety Report 20091182 (Version 2)
Quarter: 2021Q4

REPORT INFORMATION
  Report Type: Spontaneous
  Country: GB (occurrence: GB)
  Receive Date: 20211119
  Receipt Date: 20211221
  Transmission Date: 20220303
  Serious: Yes (Other)
  Sender: FDA-Public Use
  Company Number: GB-EMA-DD-20181004-KSEVHUMANWT-094808

PATIENT

DRUGS (6)
  1. COCODAMOL [Suspect]
     Active Substance: ACETAMINOPHEN\CODEINE PHOSPHATE
     Indication: Pain
     Dosage: 8 DOSAGE FORM, QD (8 DF, QD (2 DF, 4/DAY) IN 1ST TRIMESTER
     Route: 048
  2. FENTANYL [Suspect]
     Active Substance: FENTANYL
     Indication: Pain
     Dosage: UNK, IN 1ST TRIMESTER
     Route: 062
  3. TRAMADOL HYDROCHLORIDE [Suspect]
     Active Substance: TRAMADOL HYDROCHLORIDE
     Indication: Pain
     Dosage: 2 DF, QD, IN 1ST TRIMESTER
     Route: 048
  4. TRAMADOL HYDROCHLORIDE [Suspect]
     Active Substance: TRAMADOL HYDROCHLORIDE
     Dosage: 2 DF, 4/DAY; DOSAGE FORM: UNSPECIFIED. [8 DOSAGE FORM, QD, IN 1ST TRIMESTER (8 DF, QD (2 DF, 4/DAY)]
     Route: 048
  5. COCODAMOL [Suspect]
     Active Substance: ACETAMINOPHEN\CODEINE PHOSPHATE
     Indication: Pain
     Dosage: 2 DOSAGE FORM, QD
     Route: 048
  6. COCODAMOL [Suspect]
     Active Substance: ACETAMINOPHEN\CODEINE PHOSPHATE
     Dosage: 8 DOSAGE FORM, QD (8 DF, QD (2 DF, 4/DAY) IN 1ST TRIMESTER, CO-CODAMOL
     Route: 048

REACTIONS (10)
  - Dependence [Recovered/Resolved]
  - Nausea [Recovered/Resolved]
  - Somnolence [Recovered/Resolved]
  - Amnesia [Recovered/Resolved]
  - Withdrawal syndrome [Recovered/Resolved]
  - Body dysmorphic disorder [Recovered/Resolved]
  - Drug abuse [Unknown]
  - Drug ineffective [Unknown]
  - Crying [Recovered/Resolved]
  - Maternal exposure during pregnancy [Recovered/Resolved]
